FAERS Safety Report 5223067-X (Version None)
Quarter: 2007Q1

REPORT INFORMATION
  Report Type: 
  Country: None (occurrence: None)
  Receive Date: 20070129
  Receipt Date: 20070117
  Transmission Date: 20070707
  Serious: Yes (Other)
  Sender: FDA-Public Use
  Company Number: GB-PFIZER INC-2007005138

PATIENT
  Age: 48 Year

DRUGS (2)
  1. EPANUTIN SUSPENSION [Suspect]
     Indication: EPILEPSY
  2. MIRTAZAPINE [Interacting]

REACTIONS (2)
  - DRUG INTERACTION [None]
  - EPILEPSY [None]
